FAERS Safety Report 20633087 (Version 2)
Quarter: 2022Q2

REPORT INFORMATION
  Report Type: Spontaneous
  Country: KR (occurrence: KR)
  Receive Date: 20220324
  Receipt Date: 20220407
  Transmission Date: 20220720
  Serious: Yes (Other)
  Sender: FDA-Public Use
  Company Number: KR-TEVA-2022-KR-2018962

PATIENT
  Age: 78 Year
  Sex: Male

DRUGS (1)
  1. ERLOTINIB [Suspect]
     Active Substance: ERLOTINIB
     Indication: Lung neoplasm malignant
     Dosage: 150 MILLIGRAM DAILY;
     Route: 065

REACTIONS (5)
  - Leukoencephalopathy [Not Recovered/Not Resolved]
  - Aphasia [Unknown]
  - Ataxia [Unknown]
  - Hypophagia [Unknown]
  - Wheelchair user [Unknown]
